FAERS Safety Report 23240390 (Version 1)
Quarter: 2023Q4

REPORT INFORMATION
  Report Type: Spontaneous
  Country: US (occurrence: US)
  Receive Date: 20231129
  Receipt Date: 20231129
  Transmission Date: 20240109
  Serious: No
  Sender: FDA-Public Use
  Company Number: US-ELI_LILLY_AND_COMPANY-US202311016341

PATIENT
  Sex: Female

DRUGS (1)
  1. MOUNJARO [Suspect]
     Active Substance: TIRZEPATIDE
     Indication: Weight abnormal
     Dosage: 15 MG, WEEKLY (1/W)
     Route: 058

REACTIONS (2)
  - Off label use [Unknown]
  - Incorrect dose administered [Unknown]
